FAERS Safety Report 6766169-9 (Version None)
Quarter: 2010Q2

REPORT INFORMATION
  Report Type: 
  Country: None (occurrence: None)
  Receive Date: 20100609
  Receipt Date: 20100521
  Transmission Date: 20101027
  Serious: Yes (Hospitalization)
  Sender: FDA-Public Use
  Company Number: P0535

PATIENT
  Age: 58 Year
  Sex: Male
  Weight: 96.9 kg

DRUGS (20)
  1. SIPULEUCEL-T   (INFUSION) [Suspect]
     Indication: PROSTATE CANCER METASTATIC
     Dosage: INTRAVENOUS
     Route: 042
     Dates: start: 20100402, end: 20100402
  2. SIPULEUCEL-T   (INFUSION) [Suspect]
     Indication: PROSTATE CANCER METASTATIC
     Dosage: INTRAVENOUS
     Route: 042
     Dates: start: 20100416, end: 20100416
  3. SIPULEUCEL-T   (INFUSION) [Suspect]
     Indication: PROSTATE CANCER METASTATIC
     Dosage: INTRAVENOUS
     Route: 042
     Dates: start: 20100430, end: 20100430
  4. CIPRO [Concomitant]
  5. ASPIRIN [Concomitant]
  6. ADVAIR (FUTICASONE PROPIONATE, SALMETEROL XINAFOATE) [Concomitant]
  7. LASIX [Concomitant]
  8. GABAPENTIN [Concomitant]
  9. LANTUS [Concomitant]
  10. METFORMIN ER (METFORMIM HYDROCHLORIDE) [Concomitant]
  11. NICOTINE [Concomitant]
  12. OMEPRAZOLE [Concomitant]
  13. ZANAFLEX [Concomitant]
  14. TYLENOL EXTRA STRENGTH (PARACETAMOL) (TABLETS) [Concomitant]
  15. ALBUTEROL [Concomitant]
  16. LORTAB 5/500 (PARACETAMOL, HYDROCODONE BITARTRATE) [Concomitant]
  17. NOVOLOG INSULIN (INSULIN ASPART) [Concomitant]
  18. HUMALOG INSULIN (INSULIN LISPRO) [Concomitant]
  19. DEGARELIX (DEGARELIX) [Concomitant]
  20. WARFARIN SODIUM [Concomitant]

REACTIONS (8)
  - BRONCHITIS [None]
  - DEEP VEIN THROMBOSIS [None]
  - LUNG INFILTRATION [None]
  - METASTASES TO SPINE [None]
  - PULMONARY EMBOLISM [None]
  - PULMONARY FIBROSIS [None]
  - SINUSITIS [None]
  - THROMBOPHLEBITIS SUPERFICIAL [None]
